FAERS Safety Report 23533341 (Version 1)
Quarter: 2024Q1

REPORT INFORMATION
  Report Type: Spontaneous
  Country: US (occurrence: None)
  Receive Date: 20240216
  Receipt Date: 20240216
  Transmission Date: 20240410
  Serious: No
  Sender: FDA-Public Use
  Company Number: None

PATIENT
  Age: 55 Year
  Sex: Female
  Weight: 69.4 kg

DRUGS (2)
  1. RINVOQ [Suspect]
     Active Substance: UPADACITINIB
     Indication: Rheumatoid arthritis
     Dosage: TAKE 1 TABLET BY MOUTH DAILY AS DIRECTED.
     Route: 048
     Dates: start: 202106
  2. VICTOZA [Suspect]
     Active Substance: LIRAGLUTIDE

REACTIONS (2)
  - Liver disorder [None]
  - Therapy cessation [None]
